FAERS Safety Report 21434268 (Version 1)
Quarter: 2022Q4

REPORT INFORMATION
  Report Type: Report from Study
  Country: US (occurrence: US)
  Receive Date: 20221010
  Receipt Date: 20221010
  Transmission Date: 20230113
  Serious: Yes (Death)
  Sender: FDA-Public Use
  Company Number: US-INSMED, INC.-2022-01683-US

PATIENT
  Sex: Male

DRUGS (1)
  1. ARIKAYCE [Suspect]
     Active Substance: AMIKACIN
     Indication: Mycobacterium avium complex infection
     Dosage: 590 MILLIGRAM, QD
     Route: 055
     Dates: start: 20220608, end: 20220722

REACTIONS (9)
  - Death [Fatal]
  - Paraesthesia [Unknown]
  - Neuropathy peripheral [Unknown]
  - Tinnitus [Unknown]
  - Dizziness [Recovered/Resolved]
  - Dizziness [Unknown]
  - Haemoptysis [Recovering/Resolving]
  - Insurance issue [Unknown]
  - Therapy interrupted [Unknown]

NARRATIVE: CASE EVENT DATE: 20220101
